FAERS Safety Report 20010645 (Version 1)
Quarter: 2021Q4

REPORT INFORMATION
  Report Type: Spontaneous
  Country: US (occurrence: US)
  Receive Date: 20211028
  Receipt Date: 20211028
  Transmission Date: 20220303
  Serious: Yes (Other)
  Sender: FDA-Public Use
  Company Number: US-MLMSERVICE-20211013-3157633-1

PATIENT
  Age: 70 Year
  Sex: Female

DRUGS (8)
  1. CLOPIDOGREL [Suspect]
     Active Substance: CLOPIDOGREL BISULFATE
     Indication: Antiplatelet therapy
  2. ASPIRIN [Suspect]
     Active Substance: ASPIRIN
     Indication: Antiplatelet therapy
  3. TENECTEPLASE [Suspect]
     Active Substance: TENECTEPLASE
     Indication: Antiplatelet therapy
  4. PHENYLEPHRINE [Concomitant]
     Active Substance: PHENYLEPHRINE HYDROCHLORIDE
  5. NITROGLYCERIN [Concomitant]
     Active Substance: NITROGLYCERIN
     Indication: Acute myocardial infarction
  6. VASOPRESSIN [Concomitant]
     Active Substance: VASOPRESSIN
  7. MILRINONE [Concomitant]
     Active Substance: MILRINONE
  8. NOREPINEPHRINE [Concomitant]
     Active Substance: NOREPINEPHRINE

REACTIONS (3)
  - Subdural haematoma [Recovered/Resolved]
  - Cerebellar infarction [Recovered/Resolved]
  - Infarction [Recovered/Resolved]
